FAERS Safety Report 7823449-3 (Version None)
Quarter: 2011Q4

REPORT INFORMATION
  Report Type: 
  Country: None (occurrence: None)
  Receive Date: 20111019
  Receipt Date: 20111005
  Transmission Date: 20120403
  Serious: Yes (Hospitalization, Other)
  Sender: FDA-Public Use
  Company Number: AU-JNJFOC-20110905326

PATIENT
  Sex: Female
  Weight: 72 kg

DRUGS (13)
  1. CLOPIDOGREL [Concomitant]
  2. NEXIUM [Concomitant]
     Route: 048
  3. VITAMIN D [Concomitant]
     Route: 048
  4. PRAVACHOL [Concomitant]
     Route: 048
  5. SEREPAX [Concomitant]
     Route: 048
  6. BRICANYL [Concomitant]
  7. ACETAMINOPHEN W/ CODEINE [Concomitant]
     Route: 048
  8. GENTEAL EYE DROPS [Concomitant]
     Route: 047
  9. PERIACTIN [Concomitant]
     Route: 048
  10. MOVIPREP [Concomitant]
     Route: 065
  11. SYMBICORT [Concomitant]
     Indication: COUGH
     Route: 055
  12. INVEGA [Suspect]
     Indication: SCHIZOAFFECTIVE DISORDER
     Route: 048
     Dates: end: 20110501
  13. ACETAMINOPHEN W/ CODEINE [Concomitant]
     Indication: PAIN
     Route: 048

REACTIONS (3)
  - EYE PAIN [None]
  - BODY TEMPERATURE FLUCTUATION [None]
  - BALANCE DISORDER [None]
